FAERS Safety Report 8417404-2 (Version None)
Quarter: 2012Q2

REPORT INFORMATION
  Report Type: 
  Country: None (occurrence: None)
  Receive Date: 20120606
  Receipt Date: 20120530
  Transmission Date: 20120825
  Serious: Yes (Hospitalization)
  Sender: FDA-Public Use
  Company Number: DE-JNJFOC-20110408755

PATIENT
  Age: 73 Year
  Sex: Male
  Weight: 85 kg

DRUGS (2)
  1. SIMPONI [Suspect]
     Indication: ANKYLOSING SPONDYLITIS
     Route: 058
     Dates: start: 20110216, end: 20111201
  2. SIMPONI [Suspect]
     Route: 058
     Dates: start: 20110127

REACTIONS (5)
  - GASTRITIS EROSIVE [None]
  - BURNING SENSATION [None]
  - WEIGHT DECREASED [None]
  - HYPERTENSION [None]
  - BENIGN PROSTATIC HYPERPLASIA [None]
